FAERS Safety Report 6261502-9 (Version None)
Quarter: 2009Q3

REPORT INFORMATION
  Report Type: 
  Country: None (occurrence: None)
  Receive Date: 20090702
  Receipt Date: 20090414
  Transmission Date: 20100115
  Serious: No
  Sender: FDA-Public Use
  Company Number: 1000005770

PATIENT
  Age: 85 Year
  Sex: Female

DRUGS (4)
  1. BYSTOLIC [Suspect]
     Indication: HYPERTENSION
     Dosage: 10 MG (10 MG,1 IN 1 D),ORAL : 5 MG (5 MG,1 IN 1 D),ORAL
     Route: 048
     Dates: start: 20081101, end: 20090101
  2. BYSTOLIC [Suspect]
     Indication: HYPERTENSION
     Dosage: 10 MG (10 MG,1 IN 1 D),ORAL : 5 MG (5 MG,1 IN 1 D),ORAL
     Route: 048
     Dates: start: 20090101
  3. VITAMIN D [Concomitant]
  4. DIOVAN HCT [Concomitant]

REACTIONS (3)
  - ASTHENIA [None]
  - DYSPNOEA [None]
  - PAIN IN EXTREMITY [None]
